FAERS Safety Report 5453769-1 (Version None)
Quarter: 2007Q3

REPORT INFORMATION
  Report Type: 
  Country: None (occurrence: None)
  Receive Date: 20070917
  Receipt Date: 20070906
  Transmission Date: 20080115
  Serious: Yes (Death)
  Sender: FDA-Public Use
  Company Number: TH-BAXTER-2007BH007557

PATIENT
  Age: 50 Year
  Sex: Male

DRUGS (1)
  1. DIANEAL [Suspect]
     Indication: DIALYSIS
     Route: 033
     Dates: start: 20070625, end: 20070819

REACTIONS (1)
  - CARDIAC FAILURE CONGESTIVE [None]
